FAERS Safety Report 11658039 (Version 2)
Quarter: 2015Q4

REPORT INFORMATION
  Report Type: Report from Study
  Country: US (occurrence: US)
  Receive Date: 20151023
  Receipt Date: 20151116
  Transmission Date: 20160304
  Serious: Yes (Life-Threatening, Other)
  Sender: FDA-Public Use
  Company Number: US-009507513-1510USA007251

PATIENT

DRUGS (4)
  1. TEMODAR [Suspect]
     Active Substance: TEMOZOLOMIDE
     Dosage: 200 MG/M2/DAY ON DAYS 1 TO 5 OF EACH SUBSEQUENT 28-DAY CYCLE
     Route: 048
  2. VANDETANIB. [Suspect]
     Active Substance: VANDETANIB
     Dosage: 100 MG, DAILY , BEGINING 5 TO 7 DAYS, BEFORE INITIATING RADIATION
  3. TEMODAR [Suspect]
     Active Substance: TEMOZOLOMIDE
     Dosage: 75 MG/M2, QD, FOR 6 WEEKS
     Route: 048
  4. TEMODAR [Suspect]
     Active Substance: TEMOZOLOMIDE
     Dosage: FOR MAINTEINANCE, 12 CYCLES OF 150 MG/M2/DAY ON DAYS 1 TO 5 OF THE FIRST 28 DAY CYCLE
     Route: 048

REACTIONS (30)
  - Dermatitis acneiform [Unknown]
  - Exfoliative rash [Unknown]
  - Hyponatraemia [Unknown]
  - Hypophosphataemia [Unknown]
  - Cerebral ischaemia [Unknown]
  - Dizziness [Unknown]
  - Fatigue [Unknown]
  - Leukopenia [Unknown]
  - Pruritus [Unknown]
  - Aspartate aminotransferase increased [Unknown]
  - Hyperglycaemia [Unknown]
  - Balance disorder [Unknown]
  - Neutropenia [Unknown]
  - Thrombocytopenia [Unknown]
  - Diarrhoea [Unknown]
  - Hepatobiliary infection [Unknown]
  - Lymphopenia [Unknown]
  - Erythema multiforme [Unknown]
  - Colonic fistula [Unknown]
  - Dyspnoea [Unknown]
  - Hyperbilirubinaemia [Unknown]
  - Asthenia [Unknown]
  - Anaemia [Unknown]
  - Large intestine perforation [Unknown]
  - Pancreas infection [Unknown]
  - Alanine aminotransferase increased [Unknown]
  - Hypoxia [Unknown]
  - Hypertension [Unknown]
  - Embolism [Unknown]
  - Cholecystitis [Unknown]
